FAERS Safety Report 7362522-3 (Version None)
Quarter: 2011Q1

REPORT INFORMATION
  Report Type: 
  Country: None (occurrence: None)
  Receive Date: 20110318
  Receipt Date: 20110221
  Transmission Date: 20110831
  Serious: Yes (Death)
  Sender: FDA-Public Use
  Company Number: JP-ASTRAZENECA-2011SE14695

PATIENT
  Sex: Male

DRUGS (1)
  1. MEROPEN [Suspect]
     Route: 042
     Dates: start: 20081201, end: 20090101

REACTIONS (1)
  - TOXIC EPIDERMAL NECROLYSIS [None]
